FAERS Safety Report 24044178 (Version 7)
Quarter: 2024Q4

REPORT INFORMATION
  Report Type: Report from Study
  Country: US (occurrence: US)
  Receive Date: 20240703
  Receipt Date: 20241230
  Transmission Date: 20250114
  Serious: Yes (Hospitalization, Other)
  Sender: INSMED
  Company Number: US-INSMED, INC.-2024-00640-US

PATIENT
  Sex: Female

DRUGS (2)
  1. ARIKAYCE [Suspect]
     Active Substance: AMIKACIN
     Indication: Mycobacterium avium complex infection
     Dosage: 590 MILLIGRAM, QD
     Route: 055
     Dates: start: 20240212, end: 2024
  2. ARIKAYCE [Suspect]
     Active Substance: AMIKACIN
     Dosage: 590 MILLIGRAM, QD
     Route: 055
     Dates: start: 2024

REACTIONS (26)
  - Hospitalisation [Unknown]
  - Pneumonia [Unknown]
  - Increased viscosity of bronchial secretion [Recovering/Resolving]
  - Gastrointestinal disorder [Not Recovered/Not Resolved]
  - Loss of personal independence in daily activities [Unknown]
  - Cachexia [Not Recovered/Not Resolved]
  - Fall [Unknown]
  - Defaecation urgency [Unknown]
  - Sputum increased [Not Recovered/Not Resolved]
  - Cough [Recovering/Resolving]
  - Asthenia [Recovering/Resolving]
  - Aphonia [Not Recovered/Not Resolved]
  - Dysphonia [Unknown]
  - Weight decreased [Not Recovered/Not Resolved]
  - Productive cough [Not Recovered/Not Resolved]
  - Malaise [Recovering/Resolving]
  - Therapy interrupted [Unknown]
  - Wrong technique in product usage process [Unknown]
  - Wrong technique in device usage process [Unknown]
  - Accidental underdose [Unknown]
  - Product dose omission issue [Unknown]
  - Product use complaint [Unknown]
  - Drug ineffective [Unknown]
  - Device delivery system issue [Unknown]
  - Incorrect product administration duration [Unknown]
  - Device issue [Unknown]

NARRATIVE: CASE EVENT DATE: 20240101
